FAERS Safety Report 7390023-5 (Version None)
Quarter: 2011Q1

REPORT INFORMATION
  Report Type: 
  Country: None (occurrence: None)
  Receive Date: 20110324
  Receipt Date: 20110311
  Transmission Date: 20110831
  Serious: Yes (Death)
  Sender: FDA-Public Use
  Company Number: UTC-005688

PATIENT
  Age: 57 Year
  Sex: Female
  Weight: 50.45 kg

DRUGS (4)
  1. DIURETICS (DIURETICS) [Concomitant]
  2. REMODULIN [Suspect]
  3. REMODULIN [Suspect]
     Indication: COR PULMONALE CHRONIC
     Dosage: 82.08 UG/KG (0.57 UG/KG, 1 IN 1 MIN), SUBCUTANEOUS
     Route: 058
     Dates: start: 20110113
  4. COUMADIN [Concomitant]

REACTIONS (3)
  - FALL [None]
  - INFLUENZA LIKE ILLNESS [None]
  - NAUSEA [None]
